FAERS Safety Report 21221918 (Version 1)
Quarter: 2022Q3

REPORT INFORMATION
  Report Type: Spontaneous
  Country: US (occurrence: None)
  Receive Date: 20220816
  Receipt Date: 20220816
  Transmission Date: 20221027
  Serious: Yes (Hospitalization)
  Sender: FDA-Public Use
  Company Number: None

PATIENT
  Sex: Male

DRUGS (3)
  1. TALTZ [Suspect]
     Active Substance: IXEKIZUMAB
     Indication: Psoriatic arthropathy
     Dosage: 160MG ONCE SQ?
     Route: 058
     Dates: start: 20220718, end: 2022
  2. SAW PALMETTO [Concomitant]
  3. TAMSULOSIN [Concomitant]
     Active Substance: TAMSULOSIN

REACTIONS (7)
  - Rash [None]
  - Hot flush [None]
  - Dyspnoea [None]
  - Mass [None]
  - Joint swelling [None]
  - Periorbital swelling [None]
  - Ear swelling [None]
